FAERS Safety Report 6462218-6 (Version None)
Quarter: 2009Q4

REPORT INFORMATION
  Report Type: 
  Country: None (occurrence: None)
  Receive Date: 20091123
  Receipt Date: 20091109
  Transmission Date: 20100525
  Serious: Yes (Death, Hospitalization)
  Sender: FDA-Public Use
  Company Number: 2009AC000318

PATIENT
  Age: 64 Year
  Sex: Male

DRUGS (79)
  1. DIGOXIN [Suspect]
     Indication: ATRIAL FIBRILLATION
     Dosage: 0.25 MG;QD;PO
     Route: 048
     Dates: start: 20020409, end: 20080131
  2. DIGOXIN [Suspect]
     Indication: ATRIAL FIBRILLATION
     Dosage: 0.125 MG;QD;PO
     Route: 048
  3. PRINIVIL [Concomitant]
  4. AVANDIA [Concomitant]
  5. COUMADIN [Concomitant]
  6. TRIMOX [Concomitant]
  7. METOPROLOL [Concomitant]
  8. LISINOPRIL [Concomitant]
  9. KENALOG AEROSOL [Concomitant]
  10. METOLAZONE [Concomitant]
  11. INSPRA [Concomitant]
  12. NITROGLYCERIN [Concomitant]
  13. HYDROCHLOROTHIAZIDE [Concomitant]
  14. POTASSIUM [Concomitant]
  15. CHLORHEXIDINE GLUCONATE [Concomitant]
  16. OSMOPREP [Concomitant]
  17. AMIODARONE HCL [Concomitant]
  18. NOVOLIN [Concomitant]
  19. SIMVASTATIN [Concomitant]
  20. GLIPIZIDE [Concomitant]
  21. TOPROL-XL [Concomitant]
  22. SIPRONOLACTONE [Concomitant]
  23. NEXIUM [Concomitant]
  24. AZITHROMYCIN [Concomitant]
  25. AMOXICILLIN [Concomitant]
  26. OXYCODONE HCL AND ACETAMINOPHEN [Concomitant]
  27. CLOTRIMAZOLE [Concomitant]
  28. LANTUS [Concomitant]
  29. LEGEND STOOL SOFTENER [Concomitant]
  30. GLUCOVANCE [Concomitant]
  31. ZOCOR [Concomitant]
  32. NYSTOP [Concomitant]
  33. ADVAIR DISKUS 100/50 [Concomitant]
  34. ALLEGRA [Concomitant]
  35. ENALAPRIL [Concomitant]
  36. HYDRALAZINE HCL [Concomitant]
  37. CEFTIN [Concomitant]
  38. SUCRALFATE [Concomitant]
  39. TEQUIN [Concomitant]
  40. HYDROPANE [Concomitant]
  41. FLOVENT [Concomitant]
  42. SEREVENT [Concomitant]
  43. PREDNISONE [Concomitant]
  44. GUIATUSS [Concomitant]
  45. LEVAQUIN [Concomitant]
  46. FLOXIN [Concomitant]
  47. PRILOSEC [Concomitant]
  48. COREG [Concomitant]
  49. AMOXIL [Concomitant]
  50. GLYBURIDE [Concomitant]
  51. DIOVAN [Concomitant]
  52. MONOPRIL [Concomitant]
  53. COZAAR [Concomitant]
  54. CEPHALEXIN [Concomitant]
  55. K-DUR [Concomitant]
  56. DIPYRIDAMOLE [Concomitant]
  57. CIPRO [Concomitant]
  58. NIZORAL [Concomitant]
  59. DURICEF [Concomitant]
  60. NORVASC [Concomitant]
  61. MICRONASE [Concomitant]
  62. BENZASHAVE [Concomitant]
  63. CARDIZEM [Concomitant]
  64. HYDROCORTISONE [Concomitant]
  65. HYTONE [Concomitant]
  66. CORGARD [Concomitant]
  67. NITROGLYCERIN [Concomitant]
  68. NITRO-DUR [Concomitant]
  69. NITROSTAT [Concomitant]
  70. TICLID [Concomitant]
  71. HYDROCODONE BITARTRATE AND ACETAMINOPHEN [Concomitant]
  72. ERYTHROCIN LACTOBIONATE [Concomitant]
  73. SULFAMETHOXAZOLE [Concomitant]
  74. ALBUTEROL [Concomitant]
  75. INSULIN [Concomitant]
  76. GLUCOTROL [Concomitant]
  77. POTASSIUM [Concomitant]
  78. LASIX [Concomitant]
  79. METFORMIN HCL [Concomitant]

REACTIONS (41)
  - ANHEDONIA [None]
  - ATRIAL FIBRILLATION [None]
  - BLADDER NEOPLASM SURGERY [None]
  - CARDIAC FAILURE CONGESTIVE [None]
  - CARDIAC MURMUR [None]
  - CARDIO-RESPIRATORY ARREST [None]
  - CARDIOACTIVE DRUG LEVEL INCREASED [None]
  - CARDIOGENIC SHOCK [None]
  - CARDIOMEGALY [None]
  - CARDIOMYOPATHY [None]
  - CONSTIPATION [None]
  - CORONARY ARTERY DISEASE [None]
  - COUGH [None]
  - DIABETES MELLITUS INADEQUATE CONTROL [None]
  - DYSPNOEA EXERTIONAL [None]
  - DYSPNOEA PAROXYSMAL NOCTURNAL [None]
  - ECONOMIC PROBLEM [None]
  - ELECTROCARDIOGRAM ST-T CHANGE [None]
  - EMOTIONAL DISTRESS [None]
  - EXPOSURE TO TOXIC AGENT [None]
  - HERNIA REPAIR [None]
  - HYPERHIDROSIS [None]
  - HYPOKALAEMIA [None]
  - JUGULAR VEIN DISTENSION [None]
  - LEFT VENTRICULAR DYSFUNCTION [None]
  - MENTAL DISORDER [None]
  - MITRAL VALVE INCOMPETENCE [None]
  - MULTIPLE INJURIES [None]
  - MYOCARDIAL INFARCTION [None]
  - OCCULT BLOOD POSITIVE [None]
  - ORTHOPNOEA [None]
  - OXYGEN SATURATION DECREASED [None]
  - PAIN [None]
  - PALPITATIONS [None]
  - PNEUMONIA [None]
  - PROSTATOMEGALY [None]
  - RENAL FAILURE ACUTE [None]
  - RESPIRATORY DISTRESS [None]
  - SYNCOPE [None]
  - UNEVALUABLE EVENT [None]
  - WEIGHT DECREASED [None]
